FAERS Safety Report 5491779-9 (Version None)
Quarter: 2007Q4

REPORT INFORMATION
  Report Type: 
  Country: None (occurrence: None)
  Receive Date: 20071018
  Receipt Date: 20071016
  Transmission Date: 20080405
  Serious: Yes (Other)
  Sender: FDA-Public Use
  Company Number: 019648

PATIENT
  Sex: Female

DRUGS (3)
  1. MEDROXYPROGESTERONE [Suspect]
     Dosage: ORAL
     Route: 048
     Dates: start: 19980101, end: 20011201
  2. PREMARIN [Suspect]
     Dosage: ORAL
     Route: 048
     Dates: start: 19980101, end: 20011201
  3. PREMPRO [Suspect]
     Dosage: ORAL
     Route: 048
     Dates: start: 19980101, end: 20011201

REACTIONS (1)
  - BREAST CANCER FEMALE [None]
